FAERS Safety Report 6348529-3 (Version None)
Quarter: 2009Q3

REPORT INFORMATION
  Report Type: 
  Country: None (occurrence: None)
  Receive Date: 20090911
  Receipt Date: 20090902
  Transmission Date: 20100115
  Serious: Yes (Hospitalization)
  Sender: FDA-Public Use
  Company Number: JP-JNJFOC-20080605387

PATIENT
  Sex: Male

DRUGS (8)
  1. PREZISTA [Suspect]
     Route: 048
  2. PREZISTA [Suspect]
     Indication: HIV INFECTION
     Route: 048
  3. NORVIR [Concomitant]
     Indication: HIV INFECTION
     Route: 048
  4. TRUVADA [Concomitant]
     Indication: HIV INFECTION
     Route: 048
  5. BAKTAR [Concomitant]
     Indication: PROPHYLAXIS
     Route: 048
  6. CROSS EIGHT M [Concomitant]
     Indication: FACTOR VIII DEFICIENCY
     Dosage: DOSE GIVEN ONCE 1/3 DAYS
     Route: 042
  7. ZITHROMAX [Concomitant]
     Indication: PROPHYLAXIS
     Route: 048
  8. ISENTRESS [Concomitant]
     Indication: HIV INFECTION

REACTIONS (4)
  - ANAEMIA [None]
  - BLOOD TRIGLYCERIDES INCREASED [None]
  - BRADYCARDIA [None]
  - HEPATIC FUNCTION ABNORMAL [None]
